FAERS Safety Report 8082433-8 (Version None)
Quarter: 2012Q1

REPORT INFORMATION
  Report Type: 
  Country: None (occurrence: None)
  Receive Date: 20120127
  Receipt Date: 20110219
  Transmission Date: 20120608
  Serious: No
  Sender: FDA-Public Use
  Company Number: US-ABBOTT-11P-163-0706371-00

PATIENT
  Age: 58 Year
  Sex: Male

DRUGS (3)
  1. CIPROFLOXACIN [Concomitant]
     Indication: ABSCESS INTESTINAL
  2. HUMIRA [Suspect]
     Dosage: TAPERING DOSE
     Dates: start: 20110121
  3. FLAGYL [Concomitant]
     Indication: ABSCESS INTESTINAL

REACTIONS (2)
  - PAIN [None]
  - JOINT STIFFNESS [None]
